APPROVED DRUG PRODUCT: ADASUVE
Active Ingredient: LOXAPINE
Strength: 10MG
Dosage Form/Route: POWDER;INHALATION
Application: N022549 | Product #001
Applicant: NOVA PNEUMA INC
Approved: Dec 21, 2012 | RLD: Yes | RS: Yes | Type: RX

PATENTS:
Patent 8387612 | Expires: Oct 23, 2026